FAERS Safety Report 9082511 (Version 1)
Quarter: 2013Q1

REPORT INFORMATION
  Report Type: Report from Study
  Country: US (occurrence: US)
  Receive Date: 20130130
  Receipt Date: 20130130
  Transmission Date: 20140127
  Serious: No
  Sender: FDA-Public Use
  Company Number: US-ABBOTT-12P-163-0963760-00

PATIENT
  Sex: Female
  Weight: 95.34 kg

DRUGS (9)
  1. HUMIRA 40 MG/0.8 ML PEN [Suspect]
     Indication: PSORIATIC ARTHROPATHY
     Dates: start: 20120720, end: 20120720
  2. HUMIRA 40 MG/0.8 ML PEN [Suspect]
     Dates: start: 20120727
  3. CYMBALTA [Suspect]
     Indication: FIBROMYALGIA
  4. NAPROXEN [Suspect]
     Indication: INFLAMMATION
     Dates: end: 201207
  5. TRAMADOL [Concomitant]
     Indication: PSORIATIC ARTHROPATHY
  6. TRAMADOL [Concomitant]
     Indication: INFLAMMATION
  7. TRAMADOL [Concomitant]
     Indication: FIBROMYALGIA
  8. ROBAXIN [Concomitant]
     Indication: FIBROMYALGIA
  9. PROTONIX [Concomitant]
     Indication: PROPHYLAXIS OF NAUSEA AND VOMITING

REACTIONS (2)
  - Epistaxis [Recovered/Resolved]
  - Headache [Not Recovered/Not Resolved]
